FAERS Safety Report 16791170 (Version 1)
Quarter: 2019Q3

REPORT INFORMATION
  Report Type: Spontaneous
  Country: US (occurrence: US)
  Receive Date: 20190910
  Receipt Date: 20190910
  Transmission Date: 20191005
  Serious: Yes (Other)
  Sender: FDA-Public Use
  Company Number: US-PFIZER INC-2019385733

PATIENT
  Age: 58 Year
  Sex: Male

DRUGS (1)
  1. DOFETILIDE. [Suspect]
     Active Substance: DOFETILIDE
     Indication: ATRIAL FIBRILLATION
     Dosage: 500 UG, UNK

REACTIONS (4)
  - Exercise tolerance decreased [Unknown]
  - Cardiac failure congestive [Unknown]
  - Sleep apnoea syndrome [Unknown]
  - Drug ineffective [Unknown]
